FAERS Safety Report 7124631-3 (Version None)
Quarter: 2010Q4

REPORT INFORMATION
  Report Type: 
  Country: None (occurrence: None)
  Receive Date: 20101122
  Receipt Date: 20101122
  Transmission Date: 20110411
  Serious: Yes (Other)
  Sender: FDA-Public Use
  Company Number: None

PATIENT
  Sex: Female
  Weight: 65.7716 kg

DRUGS (2)
  1. VENLAFAXINE [Suspect]
  2. VENLAFAXINE [Suspect]

REACTIONS (1)
  - DRUG WITHDRAWAL SYNDROME [None]
